FAERS Safety Report 21055936 (Version 1)
Quarter: 2022Q3

REPORT INFORMATION
  Report Type: Spontaneous
  Country: US (occurrence: US)
  Receive Date: 20220708
  Receipt Date: 20220708
  Transmission Date: 20221027
  Serious: No
  Sender: FDA-Public Use
  Company Number: US-TEVA-2022-US-2049188

PATIENT
  Sex: Female

DRUGS (1)
  1. CLONAZEPAM [Suspect]
     Active Substance: CLONAZEPAM
     Indication: Product used for unknown indication
     Dosage: 3 MILLIGRAM DAILY;
     Route: 065
     Dates: start: 1992

REACTIONS (10)
  - Drug withdrawal syndrome [Unknown]
  - Allergic reaction to excipient [Unknown]
  - Rash [Unknown]
  - Pruritus [Unknown]
  - Rosacea [Unknown]
  - Palpitations [Unknown]
  - Dyspnoea [Unknown]
  - Therapeutic response unexpected [Unknown]
  - Heart rate decreased [Unknown]
  - Product dose omission issue [Unknown]
